FAERS Safety Report 4466744-0 (Version None)
Quarter: 2004Q4

REPORT INFORMATION
  Report Type: 
  Country: None (occurrence: None)
  Receive Date: 20041006
  Receipt Date: 20040909
  Transmission Date: 20050328
  Serious: Yes (Hospitalization)
  Sender: FDA-Public Use
  Company Number: 200412777EU

PATIENT
  Age: 56 Year
  Sex: Female

DRUGS (2)
  1. TAXOTERE [Suspect]
     Indication: NON-SMALL CELL LUNG CANCER
     Route: 042
     Dates: start: 20040428, end: 20040609
  2. CARBOPLATIN [Suspect]
     Indication: NON-SMALL CELL LUNG CANCER
     Route: 042
     Dates: start: 20040428, end: 20040609

REACTIONS (3)
  - BRONCHOPLEURAL FISTULA [None]
  - POST PROCEDURAL COMPLICATION [None]
  - SURGICAL PROCEDURE REPEATED [None]
